FAERS Safety Report 6190905-6 (Version None)
Quarter: 2009Q2

REPORT INFORMATION
  Report Type: 
  Country: None (occurrence: None)
  Receive Date: 20090513
  Receipt Date: 20090508
  Transmission Date: 20091009
  Serious: Yes (Death)
  Sender: FDA-Public Use
  Company Number: 2009SP009781

PATIENT
  Sex: Female

DRUGS (1)
  1. POSACONAZOLE [Suspect]
     Indication: ZYGOMYCOSIS

REACTIONS (2)
  - ASPERGILLOSIS [None]
  - TRANSPLANT [None]
